FAERS Safety Report 6260665-9 (Version None)
Quarter: 2009Q3

REPORT INFORMATION
  Report Type: 
  Country: None (occurrence: None)
  Receive Date: 20090708
  Receipt Date: 20090625
  Transmission Date: 20100115
  Serious: Yes (Hospitalization)
  Sender: FDA-Public Use
  Company Number: US-ROCHE-640750

PATIENT
  Age: 66 Year
  Sex: Female

DRUGS (3)
  1. PEGASYS [Suspect]
     Indication: HEPATITIS C
     Route: 065
     Dates: start: 20081001, end: 20090301
  2. COPEGUS [Suspect]
     Indication: HEPATITIS C
     Route: 065
     Dates: start: 20081001
  3. COPEGUS [Suspect]
     Dosage: DOSE REDUCED
     Route: 065
     Dates: end: 20090301

REACTIONS (5)
  - ANAEMIA [None]
  - CHEST PAIN [None]
  - HYPERSOMNIA [None]
  - HYPOTENSION [None]
  - LUNG NEOPLASM [None]
